FAERS Safety Report 18464771 (Version 3)
Quarter: 2022Q3

REPORT INFORMATION
  Report Type: Report from Study
  Country: US (occurrence: US)
  Receive Date: 20201104
  Receipt Date: 20220912
  Transmission Date: 20221027
  Serious: Yes (Other)
  Sender: FDA-Public Use
  Company Number: US-TAKEDA-2020TUS047267

PATIENT
  Sex: Female
  Weight: 66 kg

DRUGS (5)
  1. LANADELUMAB [Suspect]
     Active Substance: LANADELUMAB
     Indication: Hereditary angioedema
     Dosage: 300 MILLIGRAM, 2/MONTH
     Route: 058
     Dates: start: 20200429
  2. LANADELUMAB [Suspect]
     Active Substance: LANADELUMAB
     Indication: Immune system disorder
     Dosage: 300 MILIGRAM, Q2WEEKS
     Route: 058
     Dates: start: 20200522
  3. ICATIBANT [Concomitant]
     Active Substance: ICATIBANT ACETATE
     Dosage: UNKNOWN
     Route: 065
  4. PROPRANOLOL HYDROCHLORIDE [Concomitant]
     Active Substance: PROPRANOLOL HYDROCHLORIDE
     Dosage: UNKNOWN
     Route: 065
  5. PROGESTERONE [Concomitant]
     Active Substance: PROGESTERONE
     Dosage: UNKNOWN
     Route: 065

REACTIONS (4)
  - Cervix carcinoma [Recovered/Resolved]
  - Post procedural complication [Recovered/Resolved]
  - COVID-19 [Unknown]
  - Hereditary angioedema [Recovered/Resolved]
